FAERS Safety Report 24744860 (Version 2)
Quarter: 2024Q4

REPORT INFORMATION
  Report Type: Report from Study
  Country: CA (occurrence: CA)
  Receive Date: 20241217
  Receipt Date: 20241226
  Transmission Date: 20250115
  Serious: Yes (Other)
  Sender: GILEAD
  Company Number: CA-GSK-CA2024AMR156526

PATIENT
  Age: 82 Year
  Sex: Female

DRUGS (1)
  1. AMBRISENTAN [Suspect]
     Active Substance: AMBRISENTAN
     Indication: Pulmonary arterial hypertension
     Dosage: 10 MG, QD
     Route: 048
     Dates: start: 20241030

REACTIONS (4)
  - Peripheral swelling [Recovering/Resolving]
  - Discomfort [Unknown]
  - Paraesthesia [Recovering/Resolving]
  - Pain in extremity [Recovering/Resolving]
